FAERS Safety Report 7547270-9 (Version None)
Quarter: 2011Q2

REPORT INFORMATION
  Report Type: 
  Country: None (occurrence: None)
  Receive Date: 20110614
  Receipt Date: 20110601
  Transmission Date: 20111010
  Serious: Yes (Other)
  Sender: FDA-Public Use
  Company Number: JP-UCBSA-033671

PATIENT
  Sex: Male

DRUGS (4)
  1. XYZAL [Suspect]
     Indication: RHINITIS ALLERGIC
     Route: 048
     Dates: start: 20110507, end: 20110510
  2. GASMOTIN [Concomitant]
     Indication: REFLUX OESOPHAGITIS
     Dosage: POR
     Route: 048
  3. PROMAC [Concomitant]
     Indication: REFLUX OESOPHAGITIS
     Dosage: GRN
     Route: 048
  4. LANSOPRAZOLE [Concomitant]
     Indication: REFLUX OESOPHAGITIS
     Dosage: FORM:ECT
     Route: 048

REACTIONS (2)
  - ARRHYTHMIA [None]
  - BRONCHOSPASM [None]
